FAERS Safety Report 10698061 (Version 5)
Quarter: 2015Q2

REPORT INFORMATION
  Report Type: Report from Study
  Country: AU (occurrence: AU)
  Receive Date: 20150108
  Receipt Date: 20150415
  Transmission Date: 20150821
  Serious: Yes (Other)
  Sender: FDA-Public Use
  Company Number: AU-SA-2015SA001133

PATIENT
  Age: 72 Year
  Sex: Male

DRUGS (7)
  1. ASPIRIN. [Concomitant]
     Active Substance: ASPIRIN
  2. CLOFEN [Concomitant]
     Indication: MUSCLE SPASMS
  3. COVERSYL [Concomitant]
     Active Substance: PERINDOPRIL
  4. DURIDE [Concomitant]
  5. NOTEN [Concomitant]
     Active Substance: ATENOLOL
  6. AUBAGIO [Suspect]
     Active Substance: TERIFLUNOMIDE
     Route: 048
     Dates: start: 20150403
  7. AUBAGIO [Suspect]
     Active Substance: TERIFLUNOMIDE
     Route: 048
     Dates: start: 20141106, end: 20150313

REACTIONS (7)
  - Diarrhoea [Unknown]
  - Abdominal pain [Unknown]
  - Amnesia [Recovered/Resolved]
  - Diverticulitis [Recovered/Resolved]
  - Functional gastrointestinal disorder [Recovered/Resolved]
  - Abdominal discomfort [Recovered/Resolved]
  - Renal pain [Recovered/Resolved]

NARRATIVE: CASE EVENT DATE: 201411
